FAERS Safety Report 8852300 (Version 1)
Quarter: 2012Q4

REPORT INFORMATION
  Report Type: 
  Country: KR (occurrence: KR)
  Receive Date: 20121022
  Receipt Date: 20121022
  Transmission Date: 20130627
  Serious: Yes (Other)
  Sender: FDA-Public Use
  Company Number: KR-PFIZER INC-2012256574

PATIENT
  Age: 50 Year
  Sex: Male

DRUGS (3)
  1. VANCOMYCIN HCL [Suspect]
     Indication: OSTEOMYELITIS
     Dosage: 1 g, 2x/day
     Route: 042
  2. TEICOPLANIN [Interacting]
     Indication: OSTEOMYELITIS
     Dosage: 600 mg, alternate day (every 48 hour)
     Route: 042
  3. CEFTRIAXONE [Interacting]
     Indication: OSTEOMYELITIS
     Dosage: 1 g, 3x/day
     Route: 042

REACTIONS (4)
  - Drug interaction [Recovered/Resolved]
  - Drug reaction with eosinophilia and systemic symptoms [Recovered/Resolved]
  - Alveolitis allergic [Recovered/Resolved]
  - Nephritis [Recovered/Resolved]
